FAERS Safety Report 4940702-1 (Version None)
Quarter: 2006Q1

REPORT INFORMATION
  Report Type: 
  Country: None (occurrence: None)
  Receive Date: 20060313
  Receipt Date: 20060301
  Transmission Date: 20060701
  Serious: Yes (Hospitalization)
  Sender: FDA-Public Use
  Company Number: DE-BOEHRINGER INGELHEIM PHARMACEUTICALS, INC.-2006-DE-01143DE

PATIENT
  Sex: Female
  Weight: 100 kg

DRUGS (6)
  1. MICARDIS [Suspect]
     Indication: ESSENTIAL HYPERTENSION
     Route: 048
     Dates: start: 20050528
  2. MICARDIS [Suspect]
     Indication: ESSENTIAL HYPERTENSION
  3. BETA BLOCKING AGENTS [Concomitant]
     Indication: HYPERTENSION
  4. STATINE [Concomitant]
  5. DIURETICS [Concomitant]
  6. ACE INHIBITOR [Concomitant]

REACTIONS (2)
  - DYSPNOEA [None]
  - STENT OCCLUSION [None]
